FAERS Safety Report 6284523-9 (Version None)
Quarter: 2009Q3

REPORT INFORMATION
  Report Type: 
  Country: None (occurrence: None)
  Receive Date: 20090727
  Receipt Date: 20090721
  Transmission Date: 20100115
  Serious: Yes (Hospitalization)
  Sender: FDA-Public Use
  Company Number: NL-BAYER-200926115GPV

PATIENT
  Age: 75 Year
  Sex: Male
  Weight: 104 kg

DRUGS (3)
  1. NEXAVAR [Suspect]
     Indication: HEPATIC NEOPLASM MALIGNANT
     Dosage: TIMES PER 200 MG (NOS)
     Route: 048
     Dates: start: 20090626
  2. TEMAZEPAM [Concomitant]
     Dosage: 10 MG
     Route: 048
  3. PANTOPRAZOLE SODIUM [Concomitant]
     Dosage: 40 MG
     Route: 048

REACTIONS (4)
  - NAUSEA [None]
  - PYREXIA [None]
  - TOXIC SKIN ERUPTION [None]
  - VOMITING [None]
